FAERS Safety Report 25755481 (Version 1)
Quarter: 2025Q3

REPORT INFORMATION
  Report Type: Spontaneous
  Country: EU (occurrence: EU)
  Receive Date: 20250903
  Receipt Date: 20250903
  Transmission Date: 20251021
  Serious: Yes (Hospitalization)
  Sender: MYLAN
  Company Number: EU-MYLANLABS-2025M1074099

PATIENT
  Age: 20 Year
  Sex: Male

DRUGS (8)
  1. MESALAMINE [Suspect]
     Active Substance: MESALAMINE
     Indication: Colitis ulcerative
  2. MESALAMINE [Suspect]
     Active Substance: MESALAMINE
     Route: 048
  3. MESALAMINE [Suspect]
     Active Substance: MESALAMINE
     Route: 048
  4. MESALAMINE [Suspect]
     Active Substance: MESALAMINE
  5. MESALAMINE [Suspect]
     Active Substance: MESALAMINE
     Indication: Colitis ulcerative
     Dosage: UNK, QD (RECEIVED ENEMAS DAILY)
  6. MESALAMINE [Suspect]
     Active Substance: MESALAMINE
     Dosage: UNK, QD (RECEIVED ENEMAS DAILY)
     Route: 054
  7. MESALAMINE [Suspect]
     Active Substance: MESALAMINE
     Dosage: UNK, QD (RECEIVED ENEMAS DAILY)
     Route: 054
  8. MESALAMINE [Suspect]
     Active Substance: MESALAMINE
     Dosage: UNK, QD (RECEIVED ENEMAS DAILY)

REACTIONS (1)
  - Myopericarditis [Recovered/Resolved]
